FAERS Safety Report 5842284-9 (Version None)
Quarter: 2008Q3

REPORT INFORMATION
  Report Type: 
  Country: None (occurrence: None)
  Receive Date: 20080812
  Receipt Date: 20080730
  Transmission Date: 20090109
  Serious: Yes (Hospitalization)
  Sender: FDA-Public Use
  Company Number: MY-ROCHE-548306

PATIENT
  Sex: Female
  Weight: 45.5 kg

DRUGS (12)
  1. MYCOPHENOLATE MOFETIL [Suspect]
     Indication: LUPUS NEPHRITIS
     Route: 048
     Dates: start: 20070507, end: 20080201
  2. MYCOPHENOLATE MOFETIL [Suspect]
     Dosage: DOSE WAS REDUCED
     Route: 048
     Dates: start: 20080202, end: 20080206
  3. MYCOPHENOLATE MOFETIL [Suspect]
     Indication: LUPUS NEPHRITIS
     Dosage: INDUCTION PHASE.
     Route: 048
  4. AZATHIOPRINE [Suspect]
     Indication: LUPUS NEPHRITIS
     Route: 048
     Dates: start: 20070507, end: 20080201
  5. AZATHIOPRINE [Suspect]
     Dosage: DOSE WAS REDUCED
     Route: 048
     Dates: start: 20080202, end: 20080206
  6. PREDNISOLONE [Suspect]
     Indication: LUPUS NEPHRITIS
     Route: 048
  7. CALCIUM CARBONATE [Concomitant]
     Dates: start: 20060712
  8. HYDROXYCHLOROQUINE SULFATE [Concomitant]
     Dates: start: 20060712
  9. IRBESARTAN [Concomitant]
     Dosage: DRUG REPORTED AS APPROVEL
     Dates: start: 20060711
  10. FAMOTIDINE [Concomitant]
     Dates: start: 20060711
  11. FOLIC ACID [Concomitant]
     Dates: start: 20060714
  12. CALCIDIOL [Concomitant]
     Dosage: DRUG REPORTED AS 1ALPHA-CALCIDIOL
     Dates: start: 20060712

REACTIONS (1)
  - SYSTEMIC LUPUS ERYTHEMATOSUS [None]
